FAERS Safety Report 8550177-1 (Version None)
Quarter: 2012Q3

REPORT INFORMATION
  Report Type: 
  Country: None (occurrence: None)
  Receive Date: 20120730
  Receipt Date: 20120718
  Transmission Date: 20120928
  Serious: Yes (Hospitalization)
  Sender: FDA-Public Use
  Company Number: US-ACTELION-A-NJ2012-59573

PATIENT
  Age: 45 Year
  Sex: Female

DRUGS (12)
  1. SILDENAFIL [Concomitant]
  2. SPIRONOLACTONE [Concomitant]
  3. LEVOTHYROXINE SODIUM [Concomitant]
  4. SPIRIVA [Concomitant]
  5. ABILIFY [Concomitant]
  6. WARFARIN SODIUM [Concomitant]
  7. DIGOXIN [Concomitant]
  8. FLUOXETINE HCL [Concomitant]
  9. TRACLEER [Suspect]
     Indication: PULMONARY ARTERIAL HYPERTENSION
     Dosage: 125 MG, BID
     Route: 048
  10. POTASSIUM CHLORIDE [Concomitant]
  11. REMODULIN [Concomitant]
  12. BUMEX [Concomitant]

REACTIONS (13)
  - IRON DEFICIENCY ANAEMIA [None]
  - HYPOXIA [None]
  - STAPHYLOCOCCAL BACTERAEMIA [None]
  - PYREXIA [None]
  - ATELECTASIS [None]
  - DEVICE RELATED INFECTION [None]
  - KLEBSIELLA BACTERAEMIA [None]
  - INFUSION SITE INFECTION [None]
  - PACKED RED BLOOD CELL TRANSFUSION [None]
  - DEVICE DAMAGE [None]
  - PLEURAL EFFUSION [None]
  - HEADACHE [None]
  - CHEST DISCOMFORT [None]
